FAERS Safety Report 8367096-6 (Version None)
Quarter: 2012Q2

REPORT INFORMATION
  Report Type: 
  Country: None (occurrence: None)
  Receive Date: 20120517
  Receipt Date: 20120508
  Transmission Date: 20120825
  Serious: Yes (Other)
  Sender: FDA-Public Use
  Company Number: ZA-ASTRAZENECA-2012SE29978

PATIENT
  Age: 67 Year
  Sex: Male

DRUGS (2)
  1. OMEPRAZOLE [Suspect]
     Indication: DYSPEPSIA
     Route: 048
     Dates: start: 20120227, end: 20120408
  2. ATACAND [Concomitant]
     Indication: HYPERTENSION
     Route: 048

REACTIONS (2)
  - HEART RATE INCREASED [None]
  - COMPLEX PARTIAL SEIZURES [None]
